FAERS Safety Report 9304272 (Version 1)
Quarter: 2013Q2

REPORT INFORMATION
  Report Type: Spontaneous
  Country: US (occurrence: US)
  Receive Date: 20130522
  Receipt Date: 20130522
  Transmission Date: 20140414
  Serious: No
  Sender: FDA-Public Use
  Company Number: US-009507513-1305USA004963

PATIENT
  Age: 51 Year
  Sex: Female

DRUGS (3)
  1. PEGINTRON [Suspect]
     Indication: HEPATITIS C
     Dosage: UNK
     Dates: start: 20130405
  2. CLOMIPRAMINE HYDROCHLORIDE [Concomitant]
  3. REQUIP [Concomitant]

REACTIONS (2)
  - White blood cell count decreased [Recovering/Resolving]
  - Product quality issue [Unknown]
